FAERS Safety Report 5760362-X (Version None)
Quarter: 2008Q2

REPORT INFORMATION
  Report Type: 
  Country: None (occurrence: None)
  Receive Date: 20080602
  Receipt Date: 20080520
  Transmission Date: 20081010
  Serious: Yes (Hospitalization)
  Sender: FDA-Public Use
  Company Number: 2008AL005535

PATIENT
  Age: 69 Year
  Sex: Male

DRUGS (4)
  1. DIGOXIN [Suspect]
     Indication: ARRHYTHMIA
     Dosage: 0.125MG, DAILY, PO
     Route: 048
     Dates: start: 20070101
  2. NORVASC [Concomitant]
  3. NITRGLYCERIN TRANSDERMAL SYSTEM [Concomitant]
  4. INSULIN [Concomitant]

REACTIONS (2)
  - DIALYSIS [None]
  - RENAL FAILURE [None]
